FAERS Safety Report 24739360 (Version 1)
Quarter: 2024Q4

REPORT INFORMATION
  Report Type: Spontaneous
  Country: RO (occurrence: RO)
  Receive Date: 20241216
  Receipt Date: 20241216
  Transmission Date: 20250115
  Serious: Yes (Other)
  Sender: MYLAN
  Company Number: RO-SA-2019SA183167

PATIENT
  Age: 40 Year
  Sex: Male

DRUGS (3)
  1. OXALIPLATIN [Suspect]
     Active Substance: OXALIPLATIN
     Indication: Rectal adenocarcinoma
     Dosage: CYCLE (QCY)
     Route: 065
  2. IRINOTECAN [Suspect]
     Active Substance: IRINOTECAN
     Indication: Rectal adenocarcinoma
     Dosage: 65 MILLIGRAM, CYCLE (65 MG/MP)
     Route: 065
  3. CAPECITABINE [Suspect]
     Active Substance: CAPECITABINE
     Indication: Rectal adenocarcinoma
     Dosage: CYCLE (QCY)
     Route: 065

REACTIONS (3)
  - Chest pain [Unknown]
  - Diarrhoea [Unknown]
  - Therapeutic response decreased [Unknown]
